FAERS Safety Report 19947735 (Version 6)
Quarter: 2023Q2

REPORT INFORMATION
  Report Type: Report from Study
  Country: IN (occurrence: IN)
  Receive Date: 20211012
  Receipt Date: 20230519
  Transmission Date: 20230721
  Serious: Yes (Other)
  Sender: FDA-Public Use
  Company Number: IN-TAKEDA-2021TUS062241

PATIENT
  Sex: Male
  Weight: 74 kg

DRUGS (7)
  1. VEDOLIZUMAB [Suspect]
     Active Substance: VEDOLIZUMAB
     Indication: Colitis ulcerative
     Dosage: 300 MILLIGRAM
     Route: 042
  2. Mesacol [Concomitant]
     Dosage: UNK UNK, QD
  3. FOLVITE [Concomitant]
     Active Substance: FOLIC ACID
     Dosage: UNK
  4. ROWASA [Concomitant]
     Active Substance: MESALAMINE
     Dosage: UNK
  5. CURCON [Concomitant]
     Dosage: UNK
  6. NIKORAN [Concomitant]
     Dosage: UNK
  7. ASPIRIN\CLOPIDOGREL BISULFATE [Concomitant]
     Active Substance: ASPIRIN\CLOPIDOGREL BISULFATE
     Dosage: UNK

REACTIONS (8)
  - Colitis ulcerative [Recovering/Resolving]
  - Accident [Unknown]
  - Limb injury [Unknown]
  - Weight decreased [Recovered/Resolved]
  - Anxiety [Unknown]
  - Inappropriate schedule of product administration [Unknown]
  - Product availability issue [Unknown]
  - Abdominal discomfort [Unknown]
